FAERS Safety Report 5098648-7 (Version None)
Quarter: 2006Q3

REPORT INFORMATION
  Report Type: 
  Country: None (occurrence: None)
  Receive Date: 20060907
  Receipt Date: 20060823
  Transmission Date: 20061208
  Serious: Yes (Hospitalization)
  Sender: FDA-Public Use
  Company Number: US-AMGEN-US190931

PATIENT
  Age: 42 Year
  Sex: Male

DRUGS (16)
  1. EPOGEN [Suspect]
     Indication: DIALYSIS
     Route: 042
     Dates: end: 20060818
  2. LANTUS [Concomitant]
     Route: 065
  3. HUMALOG [Concomitant]
     Route: 065
  4. LISINOPRIL [Concomitant]
     Route: 065
  5. METOPROLOL TARTRATE [Concomitant]
     Route: 065
  6. PHOSLO [Concomitant]
     Route: 065
  7. PHENERGAN HCL [Concomitant]
     Route: 065
  8. PERCOCET [Concomitant]
     Route: 065
  9. THERAGRAN-M [Concomitant]
     Route: 065
  10. ASCORBIC ACID [Concomitant]
     Route: 065
  11. EFFEXOR [Concomitant]
     Route: 065
  12. MEGACE [Concomitant]
     Route: 065
  13. RITALIN [Concomitant]
     Route: 065
  14. ATIVAN [Concomitant]
     Route: 065
  15. PROTONIX [Concomitant]
     Route: 065
  16. DURAGESIC-100 [Concomitant]
     Route: 062

REACTIONS (2)
  - DECUBITUS ULCER [None]
  - THERAPEUTIC RESPONSE DECREASED [None]
